FAERS Safety Report 5753109-4 (Version None)
Quarter: 2008Q2

REPORT INFORMATION
  Report Type: 
  Country: None (occurrence: None)
  Receive Date: 20080530
  Receipt Date: 20080527
  Transmission Date: 20081010
  Serious: Yes (Other)
  Sender: FDA-Public Use
  Company Number: US-SP-2008-00775

PATIENT
  Age: 18 Year
  Sex: Male
  Weight: 85 kg

DRUGS (3)
  1. MENACTRA [Suspect]
     Indication: IMMUNISATION
     Route: 030
     Dates: start: 20070629
  2. TUBERSOL [Suspect]
     Indication: TUBERCULIN TEST
     Route: 023
     Dates: start: 20070629
  3. BOOSTRIX [Suspect]
     Indication: IMMUNISATION
     Route: 030
     Dates: start: 20070629

REACTIONS (1)
  - SYNCOPE [None]
